FAERS Safety Report 7903427-6 (Version None)
Quarter: 2011Q4

REPORT INFORMATION
  Report Type: 
  Country: None (occurrence: None)
  Receive Date: 20111109
  Receipt Date: 20111101
  Transmission Date: 20120403
  Serious: Yes (Hospitalization)
  Sender: FDA-Public Use
  Company Number: SG-MPIJNJ-2011-04971

PATIENT

DRUGS (2)
  1. PANOBINOSTAT [Suspect]
     Indication: ANAPLASTIC LARGE CELL LYMPHOMA T- AND NULL-CELL TYPES
     Dosage: 20 MG, CYCLIC
     Route: 048
     Dates: start: 20111014, end: 20111021
  2. VELCADE [Suspect]
     Indication: ANAPLASTIC LARGE CELL LYMPHOMA T- AND NULL-CELL TYPES
     Dosage: 2.2 MG, CYCLIC
     Route: 042
     Dates: start: 20111014, end: 20111021

REACTIONS (4)
  - INGUINAL HERNIA REPAIR [None]
  - LAPAROTOMY [None]
  - BLOOD CREATININE INCREASED [None]
  - BACTERAEMIA [None]
